FAERS Safety Report 7734025-5 (Version None)
Quarter: 2011Q3

REPORT INFORMATION
  Report Type: 
  Country: None (occurrence: None)
  Receive Date: 20110906
  Receipt Date: 20110906
  Transmission Date: 20111222
  Serious: Yes (Hospitalization)
  Sender: FDA-Public Use
  Company Number: None

PATIENT
  Age: 27 Year
  Sex: Male
  Weight: 105 kg

DRUGS (1)
  1. CHLORPROMAZINE [Suspect]
     Indication: HALLUCINATION, AUDITORY
     Dosage: 25 MG PRN IM
     Route: 030
     Dates: start: 20110825

REACTIONS (1)
  - CELLULITIS [None]
